FAERS Safety Report 9647907 (Version 5)
Quarter: 2014Q2

REPORT INFORMATION
  Report Type: Spontaneous
  Country: US (occurrence: US)
  Receive Date: 20131028
  Receipt Date: 20140529
  Transmission Date: 20141212
  Serious: No
  Sender: FDA-Public Use
  Company Number: US-PFIZER INC-2013303528

PATIENT
  Age: 23 Year
  Sex: Male

DRUGS (2)
  1. INLYTA [Suspect]
     Indication: RENAL CANCER
     Dosage: 5 MG, 2X/DAY
     Dates: start: 201309
  2. INLYTA [Suspect]
     Dosage: 5 MG, 2X/DAY
     Dates: start: 20131002

REACTIONS (5)
  - Disease progression [Unknown]
  - Renal cancer [Unknown]
  - Insomnia [Unknown]
  - Headache [Recovered/Resolved]
  - Nausea [Unknown]
